FAERS Safety Report 9768168 (Version 4)
Quarter: 2017Q2

REPORT INFORMATION
  Report Type: Spontaneous
  Country: JP (occurrence: JP)
  Receive Date: 20131217
  Receipt Date: 20170413
  Transmission Date: 20170830
  Serious: Yes (Hospitalization, Other)
  Sender: FDA-Public Use
  Company Number: JP-GLAXOSMITHKLINE-B0944086A

PATIENT
  Age: 16 Year
  Sex: Female

DRUGS (4)
  1. LAMOTRIGINE. [Suspect]
     Active Substance: LAMOTRIGINE
     Indication: DEPRESSION
     Route: 048
     Dates: start: 20131007, end: 20131016
  2. JZOLOFT [Concomitant]
     Active Substance: SERTRALINE HYDROCHLORIDE
     Route: 048
  3. REMERON [Concomitant]
     Active Substance: MIRTAZAPINE
     Route: 048
  4. AMOXAN [Suspect]
     Active Substance: AMOXAPINE
     Route: 048

REACTIONS (29)
  - Stevens-Johnson syndrome [Recovering/Resolving]
  - Mucous membrane disorder [Recovering/Resolving]
  - Conjunctival hyperaemia [Recovering/Resolving]
  - Pyrexia [Recovering/Resolving]
  - Hypophagia [Recovering/Resolving]
  - Erythema of eyelid [Recovering/Resolving]
  - Mouth haemorrhage [Recovered/Resolved]
  - Oral mucosal blistering [Recovered/Resolved]
  - Skin disorder [Recovering/Resolving]
  - Lip erosion [Recovering/Resolving]
  - Toxic epidermal necrolysis [Recovering/Resolving]
  - Rash [Recovering/Resolving]
  - Blister [Recovering/Resolving]
  - Conjunctivitis [Recovering/Resolving]
  - Skin erosion [Recovering/Resolving]
  - Tongue coated [Recovered/Resolved]
  - Oral pain [Recovered/Resolved]
  - Eyelid erosion [Recovering/Resolving]
  - Vulvar erosion [Recovering/Resolving]
  - Oral mucosa erosion [Recovering/Resolving]
  - Scab [Recovering/Resolving]
  - Vulval disorder [Recovering/Resolving]
  - Epidermal necrosis [Recovering/Resolving]
  - Staphylococcal infection [Recovering/Resolving]
  - Ocular hyperaemia [Recovering/Resolving]
  - Erythema [Recovering/Resolving]
  - Eye discharge [Recovering/Resolving]
  - Lip discolouration [Recovering/Resolving]
  - Corneal lesion [Recovering/Resolving]

NARRATIVE: CASE EVENT DATE: 201310
